FAERS Safety Report 20430353 (Version 1)
Quarter: 2022Q1

REPORT INFORMATION
  Report Type: Spontaneous
  Country: US (occurrence: None)
  Receive Date: 20220203
  Receipt Date: 20220203
  Transmission Date: 20220424
  Serious: Yes (Other)
  Sender: FDA-Public Use
  Company Number: None

PATIENT
  Age: 68 Year
  Sex: Female
  Weight: 117 kg

DRUGS (19)
  1. DAPSONE [Suspect]
     Active Substance: DAPSONE
     Indication: Pemphigoid
     Dosage: FREQUENCY : DAILY;?
     Route: 048
     Dates: start: 20220106, end: 20220122
  2. LEVOTHYROXINE [Concomitant]
     Active Substance: LEVOTHYROXINE
  3. Halebetasol ointment [Concomitant]
  4. Traimcinolone 0.1% cream [Concomitant]
  5. Xidra 5% [Concomitant]
  6. Singles Freshkote PF Eye Drop [Concomitant]
  7. PREDNISONE [Concomitant]
     Active Substance: PREDNISONE
  8. HYDROXYZINE [Concomitant]
     Active Substance: HYDROXYZINE HYDROCHLORIDE
  9. CALCIUM [Concomitant]
     Active Substance: CALCIUM
  10. VITAMIN D3 [Concomitant]
     Active Substance: CHOLECALCIFEROL
  11. Multivitamin for Women over 50 [Concomitant]
  12. VITAMIN B12 [Concomitant]
     Active Substance: CYANOCOBALAMIN
  13. VITAMIN C [Concomitant]
     Active Substance: ASCORBIC ACID
  14. VITAMIN E [Concomitant]
     Active Substance: .ALPHA.-TOCOPHEROL
  15. IRON [Concomitant]
     Active Substance: IRON
  16. HERBALS\TURMERIC [Concomitant]
     Active Substance: HERBALS\TURMERIC
  17. ST. JOHN^S WORT [Concomitant]
  18. ALEVE [Concomitant]
     Active Substance: NAPROXEN SODIUM
  19. BENADRYL [Concomitant]
     Active Substance: DIPHENHYDRAMINE HYDROCHLORIDE

REACTIONS (30)
  - Headache [None]
  - Pyrexia [None]
  - Dizziness [None]
  - Vision blurred [None]
  - Irritability [None]
  - Insomnia [None]
  - Decreased appetite [None]
  - Pruritus [None]
  - Rash [None]
  - Peripheral swelling [None]
  - Urticaria [None]
  - Dyspnoea [None]
  - Swelling face [None]
  - Rash [None]
  - Lip swelling [None]
  - Swelling [None]
  - Dysstasia [None]
  - Swollen tongue [None]
  - Palpitations [None]
  - Chest pain [None]
  - Oropharyngeal pain [None]
  - Oral candidiasis [None]
  - Ear pain [None]
  - Trismus [None]
  - Gastrooesophageal reflux disease [None]
  - Dysphagia [None]
  - Dyspepsia [None]
  - Paraesthesia [None]
  - Hot flush [None]
  - Mood altered [None]

NARRATIVE: CASE EVENT DATE: 20220121
